FAERS Safety Report 6439005-8 (Version None)
Quarter: 2009Q4

REPORT INFORMATION
  Report Type: 
  Country: None (occurrence: None)
  Receive Date: 20091113
  Receipt Date: 20091109
  Transmission Date: 20100525
  Serious: Yes (Hospitalization)
  Sender: FDA-Public Use
  Company Number: FR-ROCHE-667262

PATIENT
  Sex: Female

DRUGS (6)
  1. XELODA [Suspect]
     Route: 048
     Dates: start: 20090622, end: 20090817
  2. AVASTIN [Suspect]
     Dosage: STRENGTH: 25 MG/ML INJECTABLE SOLUTION.
     Route: 042
     Dates: start: 20090622, end: 20090831
  3. AMLOR [Concomitant]
  4. COVERSYL [Concomitant]
  5. IMOVANE [Concomitant]
  6. MOPRAL [Concomitant]

REACTIONS (1)
  - PANCREATITIS ACUTE [None]
